FAERS Safety Report 11313681 (Version 1)
Quarter: 2015Q3

REPORT INFORMATION
  Report Type: Spontaneous
  Country: US (occurrence: US)
  Receive Date: 20150727
  Receipt Date: 20150727
  Transmission Date: 20151125
  Serious: No
  Sender: FDA-Public Use
  Company Number: US-ABBVIE-14P-163-1296481-00

PATIENT
  Sex: Female

DRUGS (2)
  1. SYNTHROID [Suspect]
     Active Substance: LEVOTHYROXINE SODIUM
     Indication: PRODUCT USED FOR UNKNOWN INDICATION
     Route: 065
  2. ARMOUR THYROID [Concomitant]
     Active Substance: THYROID, PORCINE\THYROID, UNSPECIFIED
     Indication: PRODUCT USED FOR UNKNOWN INDICATION

REACTIONS (13)
  - Constipation [Unknown]
  - Palpitations [Unknown]
  - Fatigue [Unknown]
  - Adverse drug reaction [Unknown]
  - Depression [Unknown]
  - Vitamin D decreased [Unknown]
  - Hair texture abnormal [Unknown]
  - Vitamin B12 decreased [Unknown]
  - Thyroid pain [Not Recovered/Not Resolved]
  - Goitre [Not Recovered/Not Resolved]
  - Dry skin [Unknown]
  - Irritability [Unknown]
  - Feeling cold [Unknown]
